FAERS Safety Report 23439002 (Version 2)
Quarter: 2024Q1

REPORT INFORMATION
  Report Type: Spontaneous
  Country: US (occurrence: US)
  Receive Date: 20240124
  Receipt Date: 20240129
  Transmission Date: 20240409
  Serious: No
  Sender: FDA-Public Use
  Company Number: US-ABBVIE-5594574

PATIENT
  Sex: Female

DRUGS (1)
  1. DIVALPROEX SODIUM [Suspect]
     Active Substance: DIVALPROEX SODIUM
     Indication: Epilepsy
     Route: 065

REACTIONS (5)
  - Trismus [Unknown]
  - Joint range of motion decreased [Unknown]
  - Tension headache [Recovered/Resolved]
  - Rash papular [Unknown]
  - Stress [Recovered/Resolved]
